FAERS Safety Report 23937691 (Version 1)
Quarter: 2024Q2

REPORT INFORMATION
  Report Type: Spontaneous
  Country: US (occurrence: None)
  Receive Date: 20240603
  Receipt Date: 20240603
  Transmission Date: 20240716
  Serious: Yes (Other)
  Sender: FDA-Public Use
  Company Number: None

PATIENT
  Age: 41 Year
  Sex: Female
  Weight: 83.25 kg

DRUGS (1)
  1. TOLNAFTATE [Suspect]
     Active Substance: TOLNAFTATE
     Indication: Tinea pedis
     Dates: start: 20240528, end: 20240603

REACTIONS (4)
  - Hypersensitivity [None]
  - Blister [None]
  - Haemorrhage [None]
  - Urticaria [None]

NARRATIVE: CASE EVENT DATE: 20240603
